FAERS Safety Report 14160229 (Version 6)
Quarter: 2018Q2

REPORT INFORMATION
  Report Type: Spontaneous
  Country: GR (occurrence: GR)
  Receive Date: 20171106
  Receipt Date: 20180611
  Transmission Date: 20180711
  Serious: Yes (Other)
  Sender: FDA-Public Use
  Company Number: GR-009507513-1711GRC001055

PATIENT
  Sex: Female

DRUGS (1)
  1. AERIUS [Suspect]
     Active Substance: DESLORATADINE
     Indication: RHINORRHOEA
     Dosage: 5 MG, UNK
     Route: 048

REACTIONS (4)
  - Gluten sensitivity [Unknown]
  - Product use in unapproved indication [Unknown]
  - Product use issue [Unknown]
  - Coeliac disease [Unknown]
